FAERS Safety Report 9169738 (Version 1)
Quarter: 2013Q1

REPORT INFORMATION
  Report Type: Spontaneous
  Country: US (occurrence: US)
  Receive Date: 20130318
  Receipt Date: 20130318
  Transmission Date: 20140127
  Serious: No
  Sender: FDA-Public Use
  Company Number: US-009507513-1303USA007063

PATIENT
  Age: 84 Year
  Sex: Male

DRUGS (4)
  1. NASONEX [Suspect]
     Indication: EPISTAXIS
     Dosage: 1 SPRAY, BID
     Route: 045
     Dates: start: 20130309, end: 20130311
  2. ZOCOR [Concomitant]
  3. COREG [Concomitant]
  4. SULAR [Concomitant]

REACTIONS (7)
  - Mental impairment [Recovering/Resolving]
  - Disturbance in attention [Recovering/Resolving]
  - Dizziness [Recovering/Resolving]
  - Eye swelling [Not Recovered/Not Resolved]
  - Local swelling [Recovering/Resolving]
  - Heart rate increased [Recovering/Resolving]
  - Off label use [Unknown]
